FAERS Safety Report 24348004 (Version 2)
Quarter: 2024Q4

REPORT INFORMATION
  Report Type: Spontaneous
  Country: US (occurrence: US)
  Receive Date: 20240923
  Receipt Date: 20241015
  Transmission Date: 20250114
  Serious: Yes (Other)
  Sender: NOVO NORDISK
  Company Number: US-NOVOPROD-1283297

PATIENT
  Age: 69 Year
  Sex: Male

DRUGS (2)
  1. WEGOVY [Suspect]
     Active Substance: SEMAGLUTIDE
     Dosage: 2.4 MG
     Route: 058
     Dates: start: 202308
  2. WEGOVY [Suspect]
     Active Substance: SEMAGLUTIDE
     Indication: Weight control
     Dosage: 0.25 MG, QW
     Route: 058

REACTIONS (5)
  - Urethral obstruction [Unknown]
  - Condition aggravated [Unknown]
  - Abdominal distension [Unknown]
  - Constipation [Unknown]
  - Nausea [Unknown]

NARRATIVE: CASE EVENT DATE: 20230814
